FAERS Safety Report 4332972-8 (Version None)
Quarter: 2004Q2

REPORT INFORMATION
  Report Type: 
  Country: None (occurrence: None)
  Receive Date: 20040406
  Receipt Date: 20030826
  Transmission Date: 20050107
  Serious: Yes (Hospitalization, Disabling, Other)
  Sender: FDA-Public Use
  Company Number: US-MERCK-0308USA02595

PATIENT
  Age: 56 Year
  Sex: Male
  Weight: 101 kg

DRUGS (8)
  1. VICODIN [Concomitant]
     Indication: OSTEOARTHRITIS
     Route: 065
  2. ASPIRIN [Concomitant]
     Indication: OSTEOARTHRITIS
     Route: 065
  3. ADVIL [Concomitant]
     Indication: OSTEOARTHRITIS
     Route: 065
  4. ADVIL [Concomitant]
     Indication: HERPES ZOSTER
     Route: 065
  5. VIOXX [Suspect]
     Indication: ARTHRALGIA
     Route: 048
     Dates: start: 20010501, end: 20010722
  6. VIOXX [Suspect]
     Route: 048
     Dates: start: 20010723
  7. ULTRAM [Concomitant]
     Indication: OSTEOARTHRITIS
     Route: 065
     Dates: start: 20010501
  8. ULTRAM [Concomitant]
     Indication: PAIN
     Route: 065
     Dates: start: 20010501

REACTIONS (18)
  - ACUTE MYOCARDIAL INFARCTION [None]
  - ANXIETY [None]
  - CALCULUS URETERIC [None]
  - CALCULUS URINARY [None]
  - CORONARY ARTERY OCCLUSION [None]
  - COUGH [None]
  - DILATATION VENTRICULAR [None]
  - DIVERTICULITIS [None]
  - HAEMATURIA [None]
  - INFLUENZA [None]
  - MITRAL VALVE INCOMPETENCE [None]
  - MYALGIA [None]
  - NAUSEA [None]
  - PHARYNGOLARYNGEAL PAIN [None]
  - PNEUMONIA [None]
  - PNEUMONIA INFLUENZAL [None]
  - TRICUSPID VALVE INCOMPETENCE [None]
  - VOMITING [None]
